FAERS Safety Report 22217928 (Version 1)
Quarter: 2023Q2

REPORT INFORMATION
  Report Type: Spontaneous
  Country: US (occurrence: US)
  Receive Date: 20230417
  Receipt Date: 20230417
  Transmission Date: 20230722
  Serious: No
  Sender: FDA-Public Use
  Company Number: US-BRISTOL-MYERS SQUIBB COMPANY-2023-053688

PATIENT
  Age: 86 Year
  Sex: Male
  Weight: 73.94 kg

DRUGS (1)
  1. ELIQUIS [Suspect]
     Active Substance: APIXABAN
     Indication: Cerebrovascular accident prophylaxis
     Route: 048
     Dates: start: 2020

REACTIONS (2)
  - Rash [Unknown]
  - Dry throat [Unknown]

NARRATIVE: CASE EVENT DATE: 20200101
